FAERS Safety Report 21044499 (Version 1)
Quarter: 2022Q3

REPORT INFORMATION
  Report Type: Spontaneous
  Country: US (occurrence: US)
  Receive Date: 20220705
  Receipt Date: 20220705
  Transmission Date: 20221027
  Serious: No
  Sender: FDA-Public Use
  Company Number: US-PADAGIS-22US005971

PATIENT

DRUGS (2)
  1. TRETINOIN [Suspect]
     Active Substance: TRETINOIN
     Indication: Skin wrinkling
     Dosage: UNK
     Route: 061
     Dates: start: 20210527
  2. TRETINOIN [Suspect]
     Active Substance: TRETINOIN
     Dosage: UNK, UNK
     Route: 061
     Dates: start: 20220418, end: 20220419

REACTIONS (3)
  - Paraesthesia [None]
  - Application site erythema [None]
  - Drug ineffective for unapproved indication [Recovered/Resolved]
